FAERS Safety Report 15460486 (Version 1)
Quarter: 2018Q4

REPORT INFORMATION
  Report Type: Spontaneous
  Country: US (occurrence: US)
  Receive Date: 20181003
  Receipt Date: 20181003
  Transmission Date: 20190204
  Serious: No
  Sender: FDA-Public Use
  Company Number: US-ELI_LILLY_AND_COMPANY-US201810001031

PATIENT
  Sex: Female

DRUGS (1)
  1. TERIPARATIDE [Suspect]
     Active Substance: TERIPARATIDE
     Indication: PRODUCT USED FOR UNKNOWN INDICATION
     Dosage: UNK, UNKNOWN
     Route: 065
     Dates: start: 2017

REACTIONS (7)
  - Hypotension [Recovering/Resolving]
  - Injection site rash [Unknown]
  - Musculoskeletal chest pain [Unknown]
  - Rash pruritic [Unknown]
  - Injection site streaking [Unknown]
  - Swelling [Unknown]
  - Dyspnoea [Recovering/Resolving]
